FAERS Safety Report 25158601 (Version 1)
Quarter: 2025Q2

REPORT INFORMATION
  Report Type: Spontaneous
  Country: PL (occurrence: PL)
  Receive Date: 20250404
  Receipt Date: 20250404
  Transmission Date: 20250716
  Serious: Yes (Hospitalization, Other)
  Sender: ORGANON
  Company Number: PL-009507513-1711POL002242

PATIENT
  Age: 4 Year
  Sex: Female

DRUGS (1)
  1. MOMETASONE FUROATE [Suspect]
     Active Substance: MOMETASONE FUROATE
     Indication: Dermatitis atopic
     Route: 061

REACTIONS (1)
  - Pseudo Cushing^s syndrome [Recovering/Resolving]
